FAERS Safety Report 16356618 (Version 2)
Quarter: 2020Q2

REPORT INFORMATION
  Report Type: Report from Study
  Country: US (occurrence: US)
  Receive Date: 20190527
  Receipt Date: 20200406
  Transmission Date: 20200713
  Serious: Yes (Other)
  Sender: FDA-Public Use
  Company Number: US-EMD SERONO-9093007

PATIENT
  Sex: Male

DRUGS (2)
  1. GABAPENTIN. [Concomitant]
     Active Substance: GABAPENTIN
     Indication: PRODUCT USED FOR UNKNOWN INDICATION
     Dosage: CURRENTLY TAKING LESS GABAPENTIN
  2. REBIF [Suspect]
     Active Substance: INTERFERON BETA-1A
     Indication: MULTIPLE SCLEROSIS
     Route: 058
     Dates: start: 20110519

REACTIONS (4)
  - Dehydration [Unknown]
  - Pain [Unknown]
  - Fatigue [Unknown]
  - Neuralgia [Unknown]
